FAERS Safety Report 9384498 (Version 1)
Quarter: 2013Q3

REPORT INFORMATION
  Report Type: Report from Study
  Country: US (occurrence: US)
  Receive Date: 20130705
  Receipt Date: 20130705
  Transmission Date: 20140515
  Serious: Yes (Hospitalization)
  Sender: FDA-Public Use
  Company Number: PHEH2013US014305

PATIENT
  Sex: Female

DRUGS (2)
  1. GILENYA [Suspect]
     Indication: MULTIPLE SCLEROSIS
     Dosage: 0.5 MG, QD
     Route: 048
  2. ANTIDEPRESSANTS [Concomitant]

REACTIONS (4)
  - Thermal burn [Recovering/Resolving]
  - Sepsis [Recovering/Resolving]
  - Anger [Recovering/Resolving]
  - Frustration [Recovering/Resolving]
